FAERS Safety Report 6493510-7 (Version None)
Quarter: 2009Q4

REPORT INFORMATION
  Report Type: 
  Country: None (occurrence: None)
  Receive Date: 20091211
  Receipt Date: 20091211
  Transmission Date: 20100525
  Serious: Yes (Life-Threatening, Hospitalization, Disabling)
  Sender: FDA-Public Use
  Company Number: None

PATIENT
  Age: 51 Year
  Sex: Female
  Weight: 65.318 kg

DRUGS (2)
  1. LUTERA 28 PAK  28 PAK [Suspect]
     Indication: MENOPAUSAL SYMPTOMS
     Dosage: 1 A DAY FOR 21 DAYS 21 DAYS ON 7 DAYS PO
     Route: 048
     Dates: start: 20010301, end: 20080301
  2. AVIANE-28 [Suspect]
     Indication: MENOPAUSAL SYMPTOMS
     Dosage: 1 A DAY FOR 21 DAYS  21 DAYS ON 7 DAYS PO
     Route: 048
     Dates: start: 19980301, end: 20010301

REACTIONS (7)
  - ALCOHOL USE [None]
  - CORONARY ARTERY DISEASE [None]
  - CORONARY ARTERY THROMBOSIS [None]
  - DYSPEPSIA [None]
  - HANGOVER [None]
  - MYOCARDIAL INFARCTION [None]
  - PRODUCT SUBSTITUTION ISSUE [None]
